FAERS Safety Report 8825626 (Version 1)
Quarter: 2012Q4

REPORT INFORMATION
  Report Type: 
  Country: US (occurrence: US)
  Receive Date: 20121004
  Receipt Date: 20121004
  Transmission Date: 20130627
  Serious: Yes (Hospitalization)
  Sender: FDA-Public Use
  Company Number: US-UCBSA-067930

PATIENT
  Sex: Male

DRUGS (2)
  1. VIMPAT [Suspect]
     Indication: CONVULSION
     Dosage: STRENGTH:150 MG
  2. KEPPRA XR [Suspect]
     Indication: CONVULSION
     Dosage: STRENGTH:500 MG

REACTIONS (1)
  - Convulsion [Unknown]
